FAERS Safety Report 5601163-2 (Version None)
Quarter: 2008Q1

REPORT INFORMATION
  Report Type: 
  Country: None (occurrence: None)
  Receive Date: 20080124
  Receipt Date: 20080111
  Transmission Date: 20080703
  Serious: Yes (Hospitalization)
  Sender: FDA-Public Use
  Company Number: SE-AMGEN-US261028

PATIENT
  Sex: Female

DRUGS (6)
  1. ENBREL [Suspect]
     Indication: DRUG USE FOR UNKNOWN INDICATION
     Dates: start: 20060901
  2. LEVOTHYROXINE SODIUM [Suspect]
     Route: 048
  3. CALCICHEW-D3 FORTE [Concomitant]
     Dosage: 500 MG/ 400 IE
  4. ACETAMINOPHEN [Concomitant]
     Dosage: 500 MG
  5. IBUMETIN [Concomitant]
     Dosage: 600 MG
  6. METHOTREXATE [Concomitant]

REACTIONS (1)
  - ATRIAL FIBRILLATION [None]
